FAERS Safety Report 9937956 (Version 1)
Quarter: 2014Q1

REPORT INFORMATION
  Report Type: Spontaneous
  Country: US (occurrence: US)
  Receive Date: 20140303
  Receipt Date: 20140303
  Transmission Date: 20141002
  Serious: No
  Sender: FDA-Public Use
  Company Number: US-BIOGENIDEC-2014BI017090

PATIENT
  Age: 38 Year
  Sex: Female
  Weight: 63 kg

DRUGS (1)
  1. TECFIDERA [Suspect]
     Indication: MULTIPLE SCLEROSIS
     Route: 048
     Dates: start: 20140111, end: 20140127

REACTIONS (6)
  - Malaise [Unknown]
  - Dehydration [Unknown]
  - Fatigue [Unknown]
  - Mobility decreased [Unknown]
  - Nausea [Unknown]
  - Vomiting [Unknown]
